FAERS Safety Report 15499865 (Version 1)
Quarter: 2018Q4

REPORT INFORMATION
  Report Type: Report from Study
  Country: US (occurrence: US)
  Receive Date: 20181015
  Receipt Date: 20181015
  Transmission Date: 20190205
  Serious: No
  Sender: FDA-Public Use
  Company Number: PHEH2018US042871

PATIENT
  Sex: Female

DRUGS (1)
  1. COSENTYX [Suspect]
     Active Substance: SECUKINUMAB
     Indication: SPONDYLOARTHROPATHY
     Dosage: 300 MG, Q4W
     Route: 058
     Dates: start: 20180222

REACTIONS (4)
  - Vomiting [Unknown]
  - Product use in unapproved indication [Unknown]
  - Heart rate increased [Unknown]
  - Irritable bowel syndrome [Unknown]
